FAERS Safety Report 25271889 (Version 1)
Quarter: 2025Q2

REPORT INFORMATION
  Report Type: Spontaneous
  Country: US (occurrence: US)
  Receive Date: 20250506
  Receipt Date: 20250506
  Transmission Date: 20250716
  Serious: No
  Sender: KINIKSA PHARMACEUTICALS
  Company Number: US-KINIKSA PHARMACEUTICALS LTD.-2025KPU000975

PATIENT
  Age: 60 Year
  Sex: Female

DRUGS (13)
  1. ARCALYST [Suspect]
     Active Substance: RILONACEPT
     Indication: Pericarditis
     Dosage: 160 MILLIGRAM, QW
     Route: 058
     Dates: start: 20250402
  2. ARCALYST [Suspect]
     Active Substance: RILONACEPT
     Route: 058
  3. COLCHICINE [Concomitant]
     Active Substance: COLCHICINE
  4. VITAMIN D3 [Concomitant]
     Active Substance: CHOLECALCIFEROL
  5. VITAMIN B12 [Concomitant]
     Active Substance: CYANOCOBALAMIN
  6. GABAPENTIN [Concomitant]
     Active Substance: GABAPENTIN
  7. KLONOPIN [Concomitant]
     Active Substance: CLONAZEPAM
  8. FUROSEMIDE [Concomitant]
     Active Substance: FUROSEMIDE
  9. ROSUVASTATIN [Concomitant]
     Active Substance: ROSUVASTATIN
  10. PRILOSEC [Concomitant]
     Active Substance: OMEPRAZOLE MAGNESIUM
  11. COENZYME Q10 [Concomitant]
     Active Substance: DIETARY SUPPLEMENT\UBIDECARENONE
  12. CALCIUM [Concomitant]
     Active Substance: CALCIUM
  13. NAPROXEN [Concomitant]
     Active Substance: NAPROXEN

REACTIONS (4)
  - Heart rate decreased [Unknown]
  - Chest pain [Unknown]
  - Incorrect dose administered [Unknown]
  - Chest discomfort [Unknown]

NARRATIVE: CASE EVENT DATE: 20250402
